FAERS Safety Report 7052402-5 (Version None)
Quarter: 2010Q4

REPORT INFORMATION
  Report Type: 
  Country: None (occurrence: None)
  Receive Date: 20101019
  Receipt Date: 20101012
  Transmission Date: 20110411
  Serious: Yes (Hospitalization)
  Sender: FDA-Public Use
  Company Number: PHHO2010US14448

PATIENT
  Sex: Male

DRUGS (2)
  1. AFINITOR [Suspect]
     Indication: TUBEROUS SCLEROSIS
     Dosage: UNK
     Route: 048
     Dates: start: 20080108, end: 20100915
  2. AFINITOR [Suspect]
     Dosage: UNK
     Route: 048
     Dates: start: 20100922

REACTIONS (4)
  - INFECTION [None]
  - LEUKOCYTOSIS [None]
  - PETECHIAE [None]
  - PYREXIA [None]
